FAERS Safety Report 8842421 (Version 1)
Quarter: 2012Q4

REPORT INFORMATION
  Report Type: Report from Study
  Country: BE (occurrence: BE)
  Receive Date: 20121016
  Receipt Date: 20121016
  Transmission Date: 20130627
  Serious: Yes (Other)
  Sender: FDA-Public Use
  Company Number: BE-ROCHE-1145508

PATIENT
  Age: 58 Year
  Sex: Female

DRUGS (5)
  1. VEMURAFENIB [Suspect]
     Indication: PRODUCT USED FOR UNKNOWN INDICATION
     Route: 048
     Dates: start: 20120727, end: 20120928
  2. ACETYLSALICYLIC ACID [Concomitant]
     Route: 048
  3. HYDROCORTISONE [Concomitant]
     Route: 065
  4. STILNOCT [Concomitant]
     Route: 065
  5. LISINOPRIL [Concomitant]
     Route: 065

REACTIONS (1)
  - Hepatotoxicity [Recovering/Resolving]
